FAERS Safety Report 4783196-1 (Version None)
Quarter: 2005Q3

REPORT INFORMATION
  Report Type: 
  Country: None (occurrence: None)
  Receive Date: 20050929
  Receipt Date: 20050920
  Transmission Date: 20060218
  Serious: Yes (Death)
  Sender: FDA-Public Use
  Company Number: GB-GLAXOSMITHKLINE-B0394589A

PATIENT
  Sex: Female
  Weight: 60 kg

DRUGS (5)
  1. PAROXETINE [Suspect]
     Dosage: 20MG UNKNOWN
     Route: 048
  2. ASPIRIN [Suspect]
     Indication: CEREBROVASCULAR ACCIDENT
     Dosage: 75MG UNKNOWN
     Route: 048
     Dates: end: 20050518
  3. ATENOLOL [Concomitant]
     Dosage: 50MG PER DAY
     Route: 048
  4. METRONIDAZOLE [Concomitant]
     Dosage: 20MG PER DAY
     Route: 048
  5. SIMVASTATIN [Concomitant]
     Dosage: 100MG PER DAY
     Route: 048

REACTIONS (1)
  - UPPER GASTROINTESTINAL HAEMORRHAGE [None]
